FAERS Safety Report 16278181 (Version 1)
Quarter: 2019Q2

REPORT INFORMATION
  Report Type: Spontaneous
  Country: NL (occurrence: NL)
  Receive Date: 20190506
  Receipt Date: 20190506
  Transmission Date: 20190711
  Serious: Yes (Other)
  Sender: FDA-Public Use
  Company Number: NL-MYLANLABS-2019M1042583

PATIENT
  Sex: Female
  Weight: 61 kg

DRUGS (4)
  1. LABETALOL [Suspect]
     Active Substance: LABETALOL\LABETALOL HYDROCHLORIDE
     Indication: HYPERTENSION
     Dosage: 100 MILLIGRAM, BID (2DD1ST)
     Route: 048
     Dates: start: 20171101
  2. ZOLPIDEM [Concomitant]
     Active Substance: ZOLPIDEM\ZOLPIDEM TARTRATE
     Dosage: 1DD0,5ST ZO NODIG
     Dates: start: 20180718
  3. SYNAPAUSE E3 [Suspect]
     Active Substance: ESTRIOL
     Indication: ATROPHIC VULVOVAGINITIS
     Dosage: 2X/WEEK OP MA EN DO 1ST
     Route: 067
     Dates: start: 20180323
  4. TRACYDAL [Suspect]
     Active Substance: TRANYLCYPROMINE SULFATE
     Indication: DEPRESSION
     Dosage: 1 DOSAGE FORM, Q6H (8U 1ST, 12U 0,5ST, 15U 0,5ST,18U 0,5ST)
     Route: 048
     Dates: start: 20170105

REACTIONS (4)
  - Arthralgia [Not Recovered/Not Resolved]
  - Inflammation [Not Recovered/Not Resolved]
  - Neuropathy peripheral [Not Recovered/Not Resolved]
  - Fatigue [Not Recovered/Not Resolved]
